FAERS Safety Report 12266092 (Version 1)
Quarter: 2016Q2

REPORT INFORMATION
  Report Type: Spontaneous
  Country: US (occurrence: US)
  Receive Date: 20160413
  Receipt Date: 20160413
  Transmission Date: 20160815
  Serious: No
  Sender: FDA-Public Use
  Company Number: US-TAKEDA-2016TUS006065

PATIENT
  Sex: Female

DRUGS (3)
  1. CONTRAVE [Suspect]
     Active Substance: BUPROPION HYDROCHLORIDE\NALTREXONE HYDROCHLORIDE
     Indication: OVERWEIGHT
     Dosage: 8/90MG
     Route: 048
     Dates: start: 201601
  2. CONTRAVE [Suspect]
     Active Substance: BUPROPION HYDROCHLORIDE\NALTREXONE HYDROCHLORIDE
     Dosage: 8/90MD, QID
     Route: 048
     Dates: start: 201603, end: 20160404
  3. CONTRAVE [Suspect]
     Active Substance: BUPROPION HYDROCHLORIDE\NALTREXONE HYDROCHLORIDE
     Dosage: 8/90MG, QD
     Route: 048
     Dates: start: 20160405, end: 20160405

REACTIONS (3)
  - Road traffic accident [Unknown]
  - Post-traumatic neck syndrome [Not Recovered/Not Resolved]
  - Tooth disorder [Not Recovered/Not Resolved]

NARRATIVE: CASE EVENT DATE: 20160328
